FAERS Safety Report 6841498-9 (Version None)
Quarter: 2010Q3

REPORT INFORMATION
  Report Type: 
  Country: None (occurrence: None)
  Receive Date: 20100714
  Receipt Date: 20070702
  Transmission Date: 20110219
  Serious: Yes (Other)
  Sender: FDA-Public Use
  Company Number: US-PFIZER INC-2007055805

PATIENT
  Sex: Female
  Weight: 77.3 kg

DRUGS (12)
  1. CHANTIX [Suspect]
     Indication: SMOKING CESSATION THERAPY
     Dates: start: 20070601
  2. KLONOPIN [Suspect]
     Indication: BIPOLAR DISORDER
  3. KLONOPIN [Suspect]
     Indication: BIPOLAR I DISORDER
  4. SEROQUEL [Suspect]
     Indication: BIPOLAR DISORDER
  5. SEROQUEL [Suspect]
     Indication: BIPOLAR I DISORDER
  6. TOPAMAX [Suspect]
     Indication: BIPOLAR DISORDER
  7. TOPAMAX [Suspect]
     Indication: BIPOLAR I DISORDER
  8. STELAZINE [Suspect]
     Indication: BIPOLAR DISORDER
  9. STELAZINE [Suspect]
     Indication: BIPOLAR I DISORDER
  10. SYNTHROID [Concomitant]
  11. NEXIUM [Concomitant]
  12. CHOLESTEROL [Concomitant]

REACTIONS (2)
  - INCREASED APPETITE [None]
  - WEIGHT INCREASED [None]
